FAERS Safety Report 5800661-6 (Version None)
Quarter: 2008Q3

REPORT INFORMATION
  Report Type: 
  Country: None (occurrence: None)
  Receive Date: 20080703
  Receipt Date: 20080623
  Transmission Date: 20090109
  Serious: Yes (Death)
  Sender: FDA-Public Use
  Company Number: RO-ROCHE-571801

PATIENT
  Sex: Female

DRUGS (2)
  1. XELODA [Suspect]
     Indication: COLON CANCER
     Route: 048
     Dates: start: 20080101, end: 20080401
  2. AVASTIN [Concomitant]
     Indication: COLON CANCER
     Dosage: FORM: VIAL
     Route: 042
     Dates: start: 20080101, end: 20080425

REACTIONS (1)
  - INTESTINAL OBSTRUCTION [None]
